FAERS Safety Report 8814832 (Version 1)
Quarter: 2012Q4

REPORT INFORMATION
  Report Type: 
  Country: CN (occurrence: CN)
  Receive Date: 20120928
  Receipt Date: 20120928
  Transmission Date: 20130627
  Serious: Yes (Other)
  Sender: FDA-Public Use
  Company Number: CN-ABBOTT-12P-035-0988182-00

PATIENT
  Age: 77 Year
  Sex: Female

DRUGS (2)
  1. VALPROATE SODIUM [Suspect]
     Indication: EPILEPSY
     Route: 048
     Dates: start: 20120915, end: 20120915
  2. VALPROATE SODIUM [Suspect]
     Route: 048
     Dates: start: 20120917, end: 20120917

REACTIONS (2)
  - Abasia [Unknown]
  - Pyrexia [Recovered/Resolved]
